FAERS Safety Report 9680856 (Version 3)
Quarter: 2013Q4

REPORT INFORMATION
  Report Type: Spontaneous
  Country: GB (occurrence: GB)
  Receive Date: 20131111
  Receipt Date: 20131221
  Transmission Date: 20140711
  Serious: Yes (Hospitalization)
  Sender: FDA-Public Use
  Company Number: PHFR2013GB006330

PATIENT
  Age: 84 Year
  Sex: Male

DRUGS (1)
  1. CLOZARIL [Suspect]
     Indication: SCHIZOPHRENIA
     Dosage: UNK
     Route: 048
     Dates: start: 19950717

REACTIONS (4)
  - General physical health deterioration [Recovering/Resolving]
  - White blood cell count increased [Unknown]
  - Neutrophil count increased [Unknown]
  - Haemoglobin decreased [Unknown]
